FAERS Safety Report 15679484 (Version 1)
Quarter: 2018Q4

REPORT INFORMATION
  Report Type: Spontaneous
  Country: FR (occurrence: FR)
  Receive Date: 20181203
  Receipt Date: 20181203
  Transmission Date: 20190205
  Serious: Yes (Hospitalization, Other)
  Sender: FDA-Public Use
  Company Number: FR-AUROBINDO-AUR-APL-2018-057843

PATIENT
  Age: 26 Year
  Sex: Male
  Weight: 60 kg

DRUGS (5)
  1. PARACETAMOL [Suspect]
     Active Substance: ACETAMINOPHEN
     Indication: PAIN
     Dosage: 1 GRAM, UNK
     Route: 048
     Dates: start: 20180927, end: 20181031
  2. DEXAMBUTOL [Suspect]
     Active Substance: ETHAMBUTOL HYDROCHLORIDE
     Indication: TUBERCULOSIS
     Dosage: 2000 MILLIGRAM, DAILY
     Route: 048
     Dates: start: 20180927, end: 20181031
  3. PIRILENE [Suspect]
     Active Substance: PYRAZINAMIDE
     Indication: TUBERCULOSIS
     Dosage: 1250 MILLIGRAM, DAILY
     Route: 048
     Dates: start: 20180927, end: 20181031
  4. RIMIFON [Suspect]
     Active Substance: ISONIAZID
     Indication: TUBERCULOSIS
     Dosage: 1 DOSAGE FORM, DAILY
     Route: 048
     Dates: start: 20180927, end: 20181031
  5. RIFADINE                           /00146902/ [Suspect]
     Active Substance: RIFAMPIN SODIUM
     Indication: TUBERCULOSIS
     Dosage: 600 MILLIGRAM, DAILY
     Route: 048
     Dates: start: 20180927, end: 20181031

REACTIONS (1)
  - Hepatitis [Recovering/Resolving]

NARRATIVE: CASE EVENT DATE: 20181031
